FAERS Safety Report 6935830-5 (Version None)
Quarter: 2010Q3

REPORT INFORMATION
  Report Type: 
  Country: None (occurrence: None)
  Receive Date: 20100823
  Receipt Date: 20100818
  Transmission Date: 20110219
  Serious: Yes (Other)
  Sender: FDA-Public Use
  Company Number: NL-ABBOTT-10P-114-0659671-00

PATIENT
  Sex: Female
  Weight: 64 kg

DRUGS (6)
  1. HUMIRA [Suspect]
     Indication: CROHN'S DISEASE
     Route: 058
     Dates: start: 20100101
  2. HUMIRA [Suspect]
     Dates: start: 20080101, end: 20090101
  3. AZITROMYCINE [Concomitant]
     Indication: INFECTION PROPHYLAXIS
     Dates: start: 20100730, end: 20100730
  4. AZITROMYCINE [Concomitant]
     Indication: ABORTION INDUCED
  5. METRONIDAZOLE [Concomitant]
     Indication: INFECTION PROPHYLAXIS
     Dates: start: 20100730, end: 20100730
  6. METRONIDAZOLE [Concomitant]
     Indication: ABORTION INDUCED

REACTIONS (1)
  - ABORTION INDUCED [None]
